FAERS Safety Report 5846155-3 (Version None)
Quarter: 2008Q3

REPORT INFORMATION
  Report Type: 
  Country: None (occurrence: None)
  Receive Date: 20080813
  Receipt Date: 20080801
  Transmission Date: 20090109
  Serious: Yes (Hospitalization)
  Sender: FDA-Public Use
  Company Number: 2008AL008954

PATIENT
  Age: 85 Year
  Sex: Female

DRUGS (1)
  1. DIGOXIN [Suspect]
     Indication: HEART RATE IRREGULAR
     Dosage: 0.125MG, DAILY, PO
     Route: 048
     Dates: start: 20070101, end: 20080501

REACTIONS (5)
  - BALANCE DISORDER [None]
  - CEREBROVASCULAR ACCIDENT [None]
  - DIARRHOEA [None]
  - KNEE ARTHROPLASTY [None]
  - LOSS OF CONSCIOUSNESS [None]
